FAERS Safety Report 8620807-4 (Version None)
Quarter: 2012Q3

REPORT INFORMATION
  Report Type: 
  Country: None (occurrence: None)
  Receive Date: 20120824
  Receipt Date: 20120810
  Transmission Date: 20120928
  Serious: Yes (Hospitalization, Other)
  Sender: FDA-Public Use
  Company Number: US-ROCHE-1098012

PATIENT
  Sex: Female

DRUGS (5)
  1. PERJETA [Suspect]
     Indication: BREAST CANCER
     Route: 065
  2. CARBOPLATIN [Concomitant]
     Indication: BREAST CANCER
  3. HERCEPTIN [Suspect]
     Indication: BREAST CANCER
     Route: 065
     Dates: start: 20060801
  4. TAXOTERE [Concomitant]
     Indication: BREAST CANCER
  5. TYKERB [Concomitant]
     Indication: BREAST CANCER METASTATIC

REACTIONS (11)
  - FEELING COLD [None]
  - PRURITUS [None]
  - MALAISE [None]
  - DRUG INEFFECTIVE [None]
  - INFUSION RELATED REACTION [None]
  - PULMONARY OEDEMA [None]
  - BREAST MASS [None]
  - BREAST PAIN [None]
  - NODULE [None]
  - LACRIMATION INCREASED [None]
  - PAIN [None]
